FAERS Safety Report 20541476 (Version 1)
Quarter: 2022Q1

REPORT INFORMATION
  Report Type: Spontaneous
  Country: MX (occurrence: MX)
  Receive Date: 20220302
  Receipt Date: 20220302
  Transmission Date: 20220424
  Serious: Yes (Other)
  Sender: FDA-Public Use
  Company Number: MX-NOVARTISPH-NVSC2022MX047387

PATIENT
  Age: 42 Year
  Sex: Female

DRUGS (3)
  1. GEMCITABINE [Suspect]
     Active Substance: GEMCITABINE
     Indication: Pleomorphic leiomyosarcoma
     Dosage: 900 MG/M2, ON DAYS 1 AND 8 EVERY 3 WEEKS (RECEIVED 4 CYCLES)
     Route: 065
     Dates: start: 202006, end: 202008
  2. DOCETAXEL [Suspect]
     Active Substance: DOCETAXEL
     Indication: Pleomorphic leiomyosarcoma
     Dosage: 75 MG/M2, CYCLIC, ON DAYS 1 AND 8 EVERY 3 WEEKS (RECEIVED 4 CYCLES)
     Route: 065
     Dates: start: 202006, end: 202008
  3. DOCETAXEL [Suspect]
     Active Substance: DOCETAXEL
     Dosage: UNK
     Route: 065

REACTIONS (5)
  - Cytopenia [Unknown]
  - Pleomorphic leiomyosarcoma [Unknown]
  - Malignant neoplasm progression [Unknown]
  - Drug intolerance [Unknown]
  - Product use in unapproved indication [Unknown]
